FAERS Safety Report 7183477-0 (Version None)
Quarter: 2010Q4

REPORT INFORMATION
  Report Type: 
  Country: None (occurrence: None)
  Receive Date: 20101210
  Receipt Date: 20101130
  Transmission Date: 20110411
  Serious: Yes (Congenital Anomaly, Other)
  Sender: FDA-Public Use
  Company Number: IDA-00465

PATIENT
  Sex: Female

DRUGS (5)
  1. INDERAL [Suspect]
     Indication: PRODUCT USED FOR UNKNOWN INDICATION
     Dosage: TRANSPLACENTAL
     Route: 064
  2. CAMPRAL [Suspect]
     Indication: ALCOHOLISM
     Dosage: TRANSPLACENTAL
     Route: 064
     Dates: start: 20100301, end: 20100701
  3. (THIAMINE) [Suspect]
     Indication: PRODUCT USED FOR UNKNOWN INDICATION
     Dosage: 200 MG DAILY, TRANSPLACENTAL
     Route: 064
     Dates: start: 20100301
  4. VENLAFAXINE [Suspect]
     Indication: PRODUCT USED FOR UNKNOWN INDICATION
     Dosage: TRANSPLACENTAL
     Route: 064
  5. VITAMIN B COMPLEX CAP [Suspect]
     Indication: PRODUCT USED FOR UNKNOWN INDICATION
     Dosage: 2 DF DAILY, TRANSPLACENTAL
     Route: 064
     Dates: start: 20100301

REACTIONS (9)
  - ABNORMAL PALMAR/PLANTAR CREASES [None]
  - CLEFT PALATE [None]
  - CONGENITAL EYE DISORDER [None]
  - DYSMORPHISM [None]
  - FINGER DEFORMITY [None]
  - FOETAL ALCOHOL SYNDROME [None]
  - LIMB MALFORMATION [None]
  - MATERNAL DRUGS AFFECTING FOETUS [None]
  - NIPPLE DISORDER [None]
